FAERS Safety Report 6166110-6 (Version None)
Quarter: 2009Q2

REPORT INFORMATION
  Report Type: 
  Country: None (occurrence: None)
  Receive Date: 20090422
  Receipt Date: 20090422
  Transmission Date: 20091009
  Serious: No
  Sender: FDA-Public Use
  Company Number: None

PATIENT
  Age: 41 Year
  Sex: Female

DRUGS (1)
  1. PENICILLIN G POTASSIUM [Suspect]
     Dosage: ;5.0 MILLION UNITS; 1;1
     Dates: start: 20081223, end: 20081223

REACTIONS (2)
  - ERYTHEMA [None]
  - PRURITUS [None]
